FAERS Safety Report 9839742 (Version 2)
Quarter: 2014Q1

REPORT INFORMATION
  Report Type: Spontaneous
  Country: US (occurrence: US)
  Receive Date: 20140124
  Receipt Date: 20140207
  Transmission Date: 20141002
  Serious: No
  Sender: FDA-Public Use
  Company Number: US-BIOGENIDEC-2014BI005266

PATIENT
  Age: 49 Year
  Sex: Male

DRUGS (2)
  1. TECFIDERA [Suspect]
     Indication: MULTIPLE SCLEROSIS
     Route: 048
  2. TECFIDERA [Suspect]
     Indication: MULTIPLE SCLEROSIS
     Route: 048
     Dates: start: 20131205

REACTIONS (9)
  - Adverse drug reaction [Recovered/Resolved]
  - Cognitive disorder [Recovered/Resolved]
  - Anger [Recovered/Resolved]
  - Memory impairment [Unknown]
  - Abnormal behaviour [Unknown]
  - Aggression [Recovered/Resolved]
  - Loss of consciousness [Recovered/Resolved]
  - Flushing [Unknown]
  - Rash [Unknown]
